FAERS Safety Report 21131709 (Version 1)
Quarter: 2022Q3

REPORT INFORMATION
  Report Type: Spontaneous
  Country: NL (occurrence: None)
  Receive Date: 20220726
  Receipt Date: 20220726
  Transmission Date: 20221027
  Serious: Yes (Hospitalization)
  Sender: FDA-Public Use
  Company Number: 2022A258186

PATIENT
  Sex: Male
  Weight: 6 kg

DRUGS (1)
  1. OMEPRAZOLE [Suspect]
     Active Substance: OMEPRAZOLE
     Indication: Regurgitation
     Dosage: 1X PER DAY 2,5ML
     Route: 048
     Dates: start: 202206

REACTIONS (2)
  - Asphyxia [Unknown]
  - Product physical consistency issue [Unknown]
